FAERS Safety Report 6347518-2 (Version None)
Quarter: 2009Q3

REPORT INFORMATION
  Report Type: 
  Country: None (occurrence: None)
  Receive Date: 20090910
  Receipt Date: 20090904
  Transmission Date: 20100115
  Serious: Yes (Other)
  Sender: FDA-Public Use
  Company Number: US-AMGEN-QUU363015

PATIENT
  Sex: Male

DRUGS (6)
  1. EPOGEN [Suspect]
     Indication: RENAL FAILURE CHRONIC
     Route: 042
     Dates: start: 20070901, end: 20090822
  2. COZAAR [Concomitant]
  3. NORVASC [Concomitant]
  4. SEVELAMER [Concomitant]
  5. LOPRESSOR [Concomitant]
  6. INSULIN [Concomitant]

REACTIONS (2)
  - ANAEMIA [None]
  - DRUG INEFFECTIVE [None]
